FAERS Safety Report 13742229 (Version 1)
Quarter: 2017Q3

REPORT INFORMATION
  Report Type: Spontaneous
  Country: US (occurrence: US)
  Receive Date: 20170711
  Receipt Date: 20170711
  Transmission Date: 20171127
  Serious: No
  Sender: FDA-Public Use
  Company Number: US-AMGEN-USASP2017101774

PATIENT
  Age: 71 Year
  Sex: Female

DRUGS (4)
  1. XELJANZ XR [Suspect]
     Active Substance: TOFACITINIB CITRATE
     Indication: PRODUCT USED FOR UNKNOWN INDICATION
     Dosage: 11 MG, UNK
     Route: 065
  2. ENBREL [Suspect]
     Active Substance: ETANERCEPT
     Indication: PRODUCT USED FOR UNKNOWN INDICATION
     Dosage: UNK
     Route: 065
  3. METHOTREXATE. [Suspect]
     Active Substance: METHOTREXATE
     Indication: PRODUCT USED FOR UNKNOWN INDICATION
     Dosage: UNK
     Route: 065
  4. SULFASALAZINE. [Suspect]
     Active Substance: SULFASALAZINE
     Indication: PRODUCT USED FOR UNKNOWN INDICATION
     Dosage: UNK
     Route: 065

REACTIONS (16)
  - Fatigue [Unknown]
  - Injection site reaction [Unknown]
  - Nodule [Unknown]
  - Peripheral swelling [Unknown]
  - Dry mouth [Unknown]
  - Insomnia [Unknown]
  - Drug effect incomplete [Unknown]
  - Pain in extremity [Unknown]
  - Seasonal allergy [Unknown]
  - Musculoskeletal stiffness [Recovered/Resolved]
  - Arthralgia [Unknown]
  - Gingival bleeding [Unknown]
  - Nasal dryness [Unknown]
  - Headache [Unknown]
  - Cough [Unknown]
  - Joint swelling [Unknown]
